FAERS Safety Report 9523176 (Version 2)
Quarter: 2013Q4

REPORT INFORMATION
  Report Type: Spontaneous
  Country: SV (occurrence: SV)
  Receive Date: 20130913
  Receipt Date: 20131014
  Transmission Date: 20140711
  Serious: Yes (Life-Threatening, Hospitalization, Disabling)
  Sender: FDA-Public Use
  Company Number: SV-GLAXOSMITHKLINE-A1041378A

PATIENT
  Age: 28 Year
  Sex: Female

DRUGS (1)
  1. INDOXYL [Suspect]
     Indication: ACNE
     Route: 061
     Dates: start: 20130906, end: 20130910

REACTIONS (3)
  - Oedema [Recovered/Resolved]
  - Urticaria [Recovered/Resolved]
  - Erythema [Recovered/Resolved]
